FAERS Safety Report 9390938 (Version 5)
Quarter: 2013Q3

REPORT INFORMATION
  Report Type: Spontaneous
  Country: NO (occurrence: None)
  Receive Date: 20130705
  Receipt Date: 20130917
  Transmission Date: 20140515
  Serious: Yes (Death, Hospitalization)
  Sender: FDA-Public Use
  Company Number: AUR-APL-2013-05586

PATIENT
  Age: 82 Year
  Sex: Male

DRUGS (11)
  1. RAMIPRIL (RAMIPRIL) [Suspect]
     Indication: PRODUCT USED FOR UNKNOWN INDICATION
     Dosage: 10 MG (10 MG, 1 IN D), UNKNOWN
  2. ALBYL-E [Suspect]
     Indication: PRODUCT USED FOR UNKNOWN INDICATION
     Dosage: 160 MG (160 MG, 1 IN 1 D), ORAL
     Route: 048
  3. MEDROL [Suspect]
     Indication: PRODUCT USED FOR UNKNOWN INDICATION
     Dosage: 8 MG (8 MG, 1 IN 1 D), UNKNOWN
     Dates: start: 20121017
  4. LAXOBERAL (SODIUM PICOSULFATE) [Concomitant]
  5. INSULATARD (INSULIN HUMAN INJECTION, ISOPHANE) [Concomitant]
  6. FRAGMIN (DALTEPARIN SODIUM) SOLUTION FOR INJECTION [Concomitant]
  7. MOVICOL (POLYETHYL. GLYC. W/POTAS. CHLOR. /SOD. BICARB.) [Concomitant]
  8. GALVUS (VILDAGLIPTIN) [Concomitant]
  9. SOMAC (PANTOPRAZOLE SODIUM SEQUIHYDRATE) [Concomitant]
  10. ACTRAPID (INSULIN HUMAN) [Concomitant]
  11. SIMVASTATIN (SIMVASTATIN) [Concomitant]

REACTIONS (5)
  - Chest pain [None]
  - Vomiting [None]
  - General physical health deterioration [None]
  - Terminal state [None]
  - Duodenal ulcer haemorrhage [None]
